FAERS Safety Report 10196371 (Version 1)
Quarter: 2014Q2

REPORT INFORMATION
  Report Type: Spontaneous
  Country: BE (occurrence: BE)
  Receive Date: 20140527
  Receipt Date: 20140527
  Transmission Date: 20141212
  Serious: Yes (Other)
  Sender: FDA-Public Use
  Company Number: BE-JNJFOC-20140514817

PATIENT
  Sex: Male

DRUGS (7)
  1. XEPLION [Suspect]
     Indication: BIPOLAR DISORDER
     Route: 030
  2. SIPRALEXA [Suspect]
     Indication: PRODUCT USED FOR UNKNOWN INDICATION
     Route: 065
  3. TRAZOLAN [Suspect]
     Indication: PRODUCT USED FOR UNKNOWN INDICATION
     Dosage: 100 ONCE A DAY 0.5
     Route: 065
  4. MANIPREX [Suspect]
     Indication: PRODUCT USED FOR UNKNOWN INDICATION
     Route: 065
  5. DEPAKINE [Suspect]
     Indication: PRODUCT USED FOR UNKNOWN INDICATION
     Route: 065
  6. L-THYROXINE [Concomitant]
     Dosage: 0.0250 UNSPECIFIED UNITS
     Route: 065
  7. XANAX RETARD [Concomitant]
     Dosage: 0.5 UNSPECIFIED UNITS
     Route: 065

REACTIONS (7)
  - Balance disorder [Unknown]
  - Musculoskeletal stiffness [Unknown]
  - Somnolence [Unknown]
  - Tremor [Unknown]
  - Memory impairment [Unknown]
  - Poisoning [Unknown]
  - Off label use [Unknown]
